FAERS Safety Report 12526806 (Version 1)
Quarter: 2016Q3

REPORT INFORMATION
  Report Type: Report from Study
  Country: US (occurrence: US)
  Receive Date: 20160705
  Receipt Date: 20160705
  Transmission Date: 20161109
  Serious: No
  Sender: FDA-Public Use
  Company Number: US-AMGEN-USASL2016083630

PATIENT
  Age: 56 Year
  Sex: Female

DRUGS (1)
  1. ENBREL [Suspect]
     Active Substance: ETANERCEPT
     Indication: PSORIATIC ARTHROPATHY
     Dosage: 25 MG, QWK
     Route: 065
     Dates: start: 20160615

REACTIONS (6)
  - Injection site urticaria [Unknown]
  - Injection site reaction [Unknown]
  - Intentional product misuse [Unknown]
  - Psychomotor hyperactivity [Unknown]
  - Rash macular [Unknown]
  - Rash papular [Unknown]

NARRATIVE: CASE EVENT DATE: 201606
